FAERS Safety Report 23780462 (Version 2)
Quarter: 2024Q2

REPORT INFORMATION
  Report Type: Report from Study
  Country: NL (occurrence: NL)
  Receive Date: 20240425
  Receipt Date: 20240522
  Transmission Date: 20240716
  Serious: Yes (Hospitalization)
  Sender: FDA-Public Use
  Company Number: NL-ABBVIE-5726293

PATIENT
  Sex: Male

DRUGS (7)
  1. CARBIDOPA\LEVODOPA [Suspect]
     Active Substance: CARBIDOPA\LEVODOPA
     Indication: Parkinson^s disease
     Dosage: MD: 12.0 ML, CD: 3.8 ML/H, ED: 2.5 ML, DURATION TEXT: REMAINS AT 16 HOURS
     Route: 050
     Dates: start: 20231227, end: 20240418
  2. CARBIDOPA\LEVODOPA [Suspect]
     Active Substance: CARBIDOPA\LEVODOPA
     Dosage: MD: 12.0 ML, CD: 3.8 ML/H, ED: 2.5 ML, DURATION TEXT: REMAINS AT 16 HOURS
     Route: 050
     Dates: start: 20240418
  3. CARBIDOPA\LEVODOPA [Suspect]
     Active Substance: CARBIDOPA\LEVODOPA
     Dosage: DURATION TEXT: REMAINS AT 16 HOURS
     Route: 050
     Dates: start: 20201027
  4. CARBIDOPA\LEVODOPA [Suspect]
     Active Substance: CARBIDOPA\LEVODOPA
     Dosage: MD: 12.0 ML, CD: 3.8 ML/H, ED: 2.5 ML, DURATION TEXT: REMAINS AT 16 HOURS
     Route: 050
     Dates: start: 20230831, end: 20231227
  5. MOVICOLON [Concomitant]
     Active Substance: POLYETHYLENE GLYCOL 3350\POTASSIUM CHLORIDE\SODIUM BICARBONATE\SODIUM CHLORIDE
     Indication: Gastrointestinal motility disorder
  6. LACTULOSUM [Concomitant]
     Indication: Gastrointestinal motility disorder
  7. POLYETHYLENE GLYCOLS [Concomitant]
     Active Substance: POLYETHYLENE GLYCOLS
     Indication: Gastrointestinal motility disorder

REACTIONS (19)
  - Rehabilitation therapy [Not Recovered/Not Resolved]
  - Device occlusion [Recovered/Resolved]
  - Weight decreased [Not Recovered/Not Resolved]
  - Dyskinesia [Not Recovered/Not Resolved]
  - Abnormal dreams [Not Recovered/Not Resolved]
  - Decreased appetite [Not Recovered/Not Resolved]
  - Nocturia [Not Recovered/Not Resolved]
  - Spinal fracture [Not Recovered/Not Resolved]
  - Back pain [Not Recovered/Not Resolved]
  - Freezing phenomenon [Not Recovered/Not Resolved]
  - Dyschezia [Not Recovered/Not Resolved]
  - Urinary incontinence [Not Recovered/Not Resolved]
  - Muscle rigidity [Not Recovered/Not Resolved]
  - Binge eating [Recovered/Resolved]
  - Gait disturbance [Not Recovered/Not Resolved]
  - Respiration abnormal [Not Recovered/Not Resolved]
  - Cognitive disorder [Not Recovered/Not Resolved]
  - Off label use [Recovered/Resolved]
  - On and off phenomenon [Not Recovered/Not Resolved]
